FAERS Safety Report 8847055 (Version 4)
Quarter: 2012Q4

REPORT INFORMATION
  Report Type: 
  Country: JP (occurrence: JP)
  Receive Date: 20121018
  Receipt Date: 20121210
  Transmission Date: 20130627
  Serious: Yes (Other)
  Sender: FDA-Public Use
  Company Number: JP-JNJFOC-20121007647

PATIENT
  Age: 50 Year
  Sex: Female
  Weight: 54 kg

DRUGS (4)
  1. TRAMCET [Suspect]
     Indication: PAIN
     Dosage: 1 per 1 day
     Route: 048
     Dates: start: 20120808, end: 20120925
  2. TRAMCET [Suspect]
     Indication: PAIN
     Dosage: 1 per 1 day
     Route: 048
     Dates: start: 20120926, end: 20120927
  3. LOXONIN [Concomitant]
     Indication: PAIN
     Route: 065
     Dates: start: 20120514, end: 20120905
  4. TROXSIN [Concomitant]
     Indication: PAIN
     Route: 048
     Dates: start: 20120514, end: 20120905

REACTIONS (4)
  - Loss of consciousness [Recovered/Resolved]
  - Amnesia [Recovered/Resolved]
  - Blood pressure increased [Recovered/Resolved]
  - Dysarthria [Recovered/Resolved]
